FAERS Safety Report 4680032-9 (Version None)
Quarter: 2005Q2

REPORT INFORMATION
  Report Type: 
  Country: None (occurrence: None)
  Receive Date: 20050602
  Receipt Date: 20050429
  Transmission Date: 20051028
  Serious: Yes (Other)
  Sender: FDA-Public Use
  Company Number: BE-GLAXOSMITHKLINE-B0380110A

PATIENT
  Age: 47 Year
  Sex: Female
  Weight: 65 kg

DRUGS (5)
  1. LAMICTAL [Suspect]
     Indication: PROPHYLAXIS
     Route: 048
     Dates: start: 20050330, end: 20050426
  2. DEPAKENE [Concomitant]
     Indication: EPILEPSY
     Dosage: 500MG TWICE PER DAY
     Route: 048
     Dates: start: 20011201
  3. LOZOL [Concomitant]
     Dosage: 1U PER DAY
     Route: 048
     Dates: start: 20050408
  4. DESOGESTREL AND ETHINYL ESTRADIOL [Concomitant]
     Indication: CONTRACEPTION
     Dosage: 1U PER DAY
     Route: 048
     Dates: start: 19940101
  5. DICLOFENAC [Concomitant]
     Indication: PHARYNGITIS
     Dosage: 50MG THREE TIMES PER DAY
     Route: 048
     Dates: start: 20050422, end: 20050425

REACTIONS (19)
  - BLOOD LACTATE DEHYDROGENASE INCREASED [None]
  - C-REACTIVE PROTEIN INCREASED [None]
  - DECREASED APPETITE [None]
  - DRUG HYPERSENSITIVITY [None]
  - HEPATIC FUNCTION ABNORMAL [None]
  - HYPERSENSITIVITY [None]
  - INDURATION [None]
  - NAUSEA [None]
  - OEDEMA PERIPHERAL [None]
  - PAIN [None]
  - RASH [None]
  - RASH PAPULAR [None]
  - SERUM FERRITIN INCREASED [None]
  - SKIN LESION [None]
  - SWELLING [None]
  - TONSILLAR ULCER [None]
  - URTICARIA [None]
  - VASCULITIS [None]
  - WEIGHT DECREASED [None]
